FAERS Safety Report 8598571-7 (Version None)
Quarter: 2012Q3

REPORT INFORMATION
  Report Type: 
  Country: None (occurrence: None)
  Receive Date: 20120816
  Receipt Date: 19920628
  Transmission Date: 20120928
  Serious: Yes (Hospitalization)
  Sender: FDA-Public Use
  Company Number: US-ROCHE-1098777

PATIENT
  Age: 40 Year
  Sex: Female

DRUGS (2)
  1. THYROID TAB [Concomitant]
     Dosage: 1 GR
  2. ACTIVASE [Suspect]
     Indication: MYOCARDIAL INFARCTION
     Dosage: 2, 50 MG VIALS
     Dates: start: 19920628

REACTIONS (7)
  - TACHYCARDIA [None]
  - CHEST PAIN [None]
  - VENTRICULAR TACHYCARDIA [None]
  - HYPOTENSION [None]
  - BRADYCARDIA [None]
  - PYREXIA [None]
  - PAIN IN EXTREMITY [None]
